FAERS Safety Report 14977662 (Version 1)
Quarter: 2018Q2

REPORT INFORMATION
  Report Type: Spontaneous
  Country: NL (occurrence: NL)
  Receive Date: 20180606
  Receipt Date: 20180606
  Transmission Date: 20180711
  Serious: Yes (Hospitalization, Other)
  Sender: FDA-Public Use
  Company Number: NL-AUROBINDO-AUR-APL-2016-13222

PATIENT
  Age: 29 Year
  Sex: Female

DRUGS (5)
  1. GLATIRAMER ACETATE. [Suspect]
     Active Substance: GLATIRAMER ACETATE
     Indication: MULTIPLE SCLEROSIS
     Dosage: 20 MG, ONCE A DAY
     Route: 058
     Dates: start: 20130910
  2. OMEPRAZOL                          /00661201/ [Concomitant]
     Active Substance: OMEPRAZOLE
     Indication: PRODUCT USED FOR UNKNOWN INDICATION
     Dosage: UNK, AS NECESSARY
     Route: 065
  3. OXAZEPAM. [Concomitant]
     Active Substance: OXAZEPAM
     Indication: PRODUCT USED FOR UNKNOWN INDICATION
     Dosage: 10 MG, ONCE A DAY
     Route: 065
  4. METRONIDAZOLE 250MG [Suspect]
     Active Substance: METRONIDAZOLE
     Indication: NONINFECTIVE GINGIVITIS
     Dosage: 250 MG, 3 TIMES A DAY
     Route: 065
     Dates: start: 20161028
  5. VESICARE [Concomitant]
     Active Substance: SOLIFENACIN SUCCINATE
     Indication: PRODUCT USED FOR UNKNOWN INDICATION
     Dosage: 10 MG, ONCE A DAY
     Route: 065

REACTIONS (8)
  - Vomiting [Recovering/Resolving]
  - Gait inability [Recovering/Resolving]
  - Mental impairment [Recovering/Resolving]
  - Confusional state [Recovering/Resolving]
  - Dyspnoea [Recovering/Resolving]
  - Back pain [Recovering/Resolving]
  - Condition aggravated [Recovering/Resolving]
  - Nausea [Recovering/Resolving]

NARRATIVE: CASE EVENT DATE: 20141101
